FAERS Safety Report 7754287-8 (Version None)
Quarter: 2011Q3

REPORT INFORMATION
  Report Type: 
  Country: None (occurrence: None)
  Receive Date: 20110915
  Receipt Date: 20110906
  Transmission Date: 20111222
  Serious: Yes (Other)
  Sender: FDA-Public Use
  Company Number: FR-UCBSA-013537

PATIENT
  Sex: Female
  Weight: 60 kg

DRUGS (3)
  1. BION 3 [Concomitant]
     Indication: FATIGUE
     Dates: start: 20100501, end: 20100616
  2. XYZAL [Suspect]
     Indication: HYPERSENSITIVITY
     Route: 048
     Dates: start: 20100501, end: 20100101
  3. GINKOR FORT [Concomitant]
     Indication: VENOUS INSUFFICIENCY

REACTIONS (2)
  - APPENDICITIS [None]
  - MATERNAL EXPOSURE DURING PREGNANCY [None]
